FAERS Safety Report 17293575 (Version 4)
Quarter: 2020Q1

REPORT INFORMATION
  Report Type: Spontaneous
  Country: JP (occurrence: JP)
  Receive Date: 20200121
  Receipt Date: 20200221
  Transmission Date: 20200409
  Serious: Yes (Life-Threatening, Hospitalization, Other)
  Sender: FDA-Public Use
  Company Number: JP-FERRINGPH-2020FE00202

PATIENT
  Age: 85 Year
  Sex: Male
  Weight: 52 kg

DRUGS (2)
  1. GONAX [Suspect]
     Active Substance: DEGARELIX
     Indication: PROSTATE CANCER
     Dosage: 240 MG, EVERY 4 WEEKS
     Route: 058
     Dates: start: 20191225, end: 20191225
  2. CASODEX [Concomitant]
     Active Substance: BICALUTAMIDE
     Dosage: UNK
     Route: 048
     Dates: start: 20191225

REACTIONS (1)
  - Postrenal failure [Recovered/Resolved]

NARRATIVE: CASE EVENT DATE: 20200106
